FAERS Safety Report 10269213 (Version 1)
Quarter: 2014Q2

REPORT INFORMATION
  Report Type: Spontaneous
  Country: DK (occurrence: DK)
  Receive Date: 20140630
  Receipt Date: 20140630
  Transmission Date: 20141212
  Serious: Yes (Other)
  Sender: FDA-Public Use
  Company Number: DK-009507513-1406DNK011151

PATIENT
  Age: 70 Year
  Sex: Male

DRUGS (4)
  1. REMERON SMELT [Suspect]
     Indication: TENSION HEADACHE
     Dosage: STRENGTH: 15 MG. THE PATIENT HAS TAKEN ONE TABLET.
     Route: 048
     Dates: start: 201310, end: 201310
  2. BRICANYL [Concomitant]
     Route: 055
  3. SERETIDE [Concomitant]
  4. SPIRIVA RESPIMAT [Concomitant]

REACTIONS (8)
  - Indifference [Recovered/Resolved]
  - Cardiac disorder [Recovered/Resolved]
  - Asthma [Recovered/Resolved]
  - Dizziness [Recovered/Resolved]
  - Dyspnoea [Recovered/Resolved]
  - Somnolence [Recovered/Resolved]
  - Night sweats [Recovered/Resolved]
  - Angina pectoris [None]
